FAERS Safety Report 16872482 (Version 2)
Quarter: 2019Q4

REPORT INFORMATION
  Report Type: Spontaneous
  Country: FR (occurrence: FR)
  Receive Date: 20191001
  Receipt Date: 20191004
  Transmission Date: 20200122
  Serious: Yes (Other)
  Sender: FDA-Public Use
  Company Number: FR-SA-2019SA266397

PATIENT
  Age: 38 Year
  Sex: Male

DRUGS (4)
  1. RANITIDINE. [Suspect]
     Active Substance: RANITIDINE
     Indication: GASTROINTESTINAL HAEMORRHAGE
     Dosage: 150 MG, QD
  2. CYCLOSPORIN [Concomitant]
     Active Substance: CYCLOSPORINE
     Dosage: 8 MG/KG, QD
  3. METHYLPREDNISOLONE. [Concomitant]
     Active Substance: METHYLPREDNISOLONE
     Dosage: 2 MG/KG, QD
  4. ACEBUTOLOL [Concomitant]
     Active Substance: ACEBUTOLOL
     Dosage: 400 MG, QD

REACTIONS (3)
  - Hepatic necrosis [Unknown]
  - Jaundice [Unknown]
  - Hepatotoxicity [Unknown]
